FAERS Safety Report 9460833 (Version 3)
Quarter: 2013Q3

REPORT INFORMATION
  Report Type: Spontaneous
  Country: US (occurrence: US)
  Receive Date: 20130816
  Receipt Date: 20130908
  Transmission Date: 20140515
  Serious: Yes (Other)
  Sender: FDA-Public Use
  Company Number: US-009507513-1308USA005488

PATIENT
  Sex: 0

DRUGS (2)
  1. REBETOL [Suspect]
     Indication: HEPATITIS C
     Route: 048
  2. TELAPREVIR [Suspect]
     Indication: HEPATITIS C

REACTIONS (1)
  - Drug reaction with eosinophilia and systemic symptoms [Unknown]
